FAERS Safety Report 6056071-2 (Version None)
Quarter: 2009Q1

REPORT INFORMATION
  Report Type: 
  Country: None (occurrence: None)
  Receive Date: 20090126
  Receipt Date: 20090112
  Transmission Date: 20090719
  Serious: Yes (Other)
  Sender: FDA-Public Use
  Company Number: 1-17269676

PATIENT
  Age: 56 Year
  Sex: Female

DRUGS (1)
  1. CLOMIPRAMINE HCL [Suspect]
     Indication: DEPRESSION
     Dosage: 9 X 25 MG TABLETS DAILY, ORAL
     Route: 048
     Dates: start: 20030901

REACTIONS (1)
  - PLEUROTHOTONUS [None]
